FAERS Safety Report 4976168-5 (Version None)
Quarter: 2006Q2

REPORT INFORMATION
  Report Type: 
  Country: None (occurrence: None)
  Receive Date: 20060410
  Receipt Date: 20060330
  Transmission Date: 20061013
  Serious: Yes (Other)
  Sender: FDA-Public Use
  Company Number: DEWYE518430MAR06

PATIENT
  Sex: Male

DRUGS (9)
  1. RAPAMUNE [Suspect]
     Dosage: SEE IMAGE
     Dates: start: 20040715, end: 20041219
  2. RAPAMUNE [Suspect]
     Dosage: SEE IMAGE
     Dates: start: 20041220
  3. CELLCEPT [Concomitant]
  4. DECORTIN (PREDNISONE) [Concomitant]
  5. LASIX [Concomitant]
  6. METOPROLOL TARTRATE [Concomitant]
  7. BLOPRESS (CANDESARTAN CILEXETIL) [Concomitant]
  8. ATORVASTATIN CALCIUM [Concomitant]
  9. ARANESP [Concomitant]

REACTIONS (1)
  - ARTERIAL THROMBOSIS LIMB [None]
